FAERS Safety Report 5739314-1 (Version None)
Quarter: 2008Q2

REPORT INFORMATION
  Report Type: 
  Country: None (occurrence: None)
  Receive Date: 20080512
  Receipt Date: 20080512
  Transmission Date: 20081010
  Serious: Yes (Hospitalization)
  Sender: FDA-Public Use
  Company Number: None

PATIENT
  Sex: Female
  Weight: 79.5 kg

DRUGS (3)
  1. METHOTREXATE [Suspect]
     Dosage: 1600 MG
  2. RITUXIMAB (MOAB C2B8 ANTI CD20, CHIMERIC) [Suspect]
     Dosage: 750 MG
  3. LEUCOVORIN CALCIUM [Suspect]
     Dosage: 200 MG

REACTIONS (4)
  - BLOOD PRESSURE INCREASED [None]
  - DYSPNOEA [None]
  - JUGULAR VEIN THROMBOSIS [None]
  - TACHYCARDIA [None]
